FAERS Safety Report 24594933 (Version 2)
Quarter: 2024Q4

REPORT INFORMATION
  Report Type: Spontaneous
  Country: JP (occurrence: JP)
  Receive Date: 20241108
  Receipt Date: 20241128
  Transmission Date: 20250115
  Serious: Yes (Hospitalization)
  Sender: ELI LILLY AND COMPANY
  Company Number: JP-ELI_LILLY_AND_COMPANY-JP202404004893

PATIENT
  Age: 73 Year
  Sex: Male

DRUGS (3)
  1. RETEVMO [Suspect]
     Active Substance: SELPERCATINIB
     Indication: Non-small cell lung cancer
     Dosage: 320 MG, DAILY
     Route: 048
  2. RETEVMO [Suspect]
     Active Substance: SELPERCATINIB
     Dosage: 40 MG, BID
     Route: 048
  3. RETEVMO [Suspect]
     Active Substance: SELPERCATINIB
     Dosage: 160 MG, BID
     Route: 048

REACTIONS (6)
  - Colitis [Recovered/Resolved]
  - Hepatic function abnormal [Unknown]
  - Eastern Cooperative Oncology Group performance status worsened [Recovering/Resolving]
  - Platelet count decreased [Recovered/Resolved]
  - Hypersensitivity [Recovered/Resolved]
  - Constipation [Recovering/Resolving]
